FAERS Safety Report 20848462 (Version 1)
Quarter: 2022Q2

REPORT INFORMATION
  Report Type: Spontaneous
  Country: US (occurrence: US)
  Receive Date: 20220519
  Receipt Date: 20220519
  Transmission Date: 20220721
  Serious: Yes (Other)
  Sender: FDA-Public Use
  Company Number: US-MYLANLABS-2022M1036414

PATIENT
  Sex: Female

DRUGS (12)
  1. EVEROLIMUS [Suspect]
     Active Substance: EVEROLIMUS
     Indication: Invasive breast carcinoma
     Dosage: UNK
     Route: 065
  2. FULVESTRANT [Suspect]
     Active Substance: FULVESTRANT
     Indication: Invasive breast carcinoma
     Dosage: UNK
     Route: 065
  3. LETROZOLE [Suspect]
     Active Substance: LETROZOLE
     Indication: Invasive breast carcinoma
     Dosage: UNK
     Route: 065
  4. GEMCITABINE [Suspect]
     Active Substance: GEMCITABINE
     Indication: Invasive breast carcinoma
     Dosage: UNK
     Route: 065
  5. ALPELISIB [Suspect]
     Active Substance: ALPELISIB
     Indication: Invasive breast carcinoma
     Dosage: UNK
     Route: 065
  6. CAPECITABINE [Suspect]
     Active Substance: CAPECITABINE
     Indication: Invasive breast carcinoma
     Dosage: UNK
     Route: 065
  7. EXEMESTANE [Suspect]
     Active Substance: EXEMESTANE
     Indication: Invasive breast carcinoma
     Dosage: UNK
     Route: 065
  8. FILGRASTIM-SNDZ [Suspect]
     Active Substance: FILGRASTIM-SNDZ
     Indication: Neutropenia
     Dosage: UNK
     Route: 065
  9. FILGRASTIM-SNDZ [Suspect]
     Active Substance: FILGRASTIM-SNDZ
     Indication: Prophylaxis
  10. LAPATINIB [Suspect]
     Active Substance: LAPATINIB
     Indication: Invasive breast carcinoma
     Dosage: UNK
     Route: 065
  11. LEUPROLIDE ACETATE [Suspect]
     Active Substance: LEUPROLIDE ACETATE
     Indication: Invasive breast carcinoma
     Dosage: UNK
     Route: 065
  12. PALBOCICLIB [Suspect]
     Active Substance: PALBOCICLIB
     Indication: Invasive breast carcinoma
     Dosage: UNK
     Route: 065

REACTIONS (1)
  - Drug ineffective [Unknown]
